FAERS Safety Report 7929199-7 (Version None)
Quarter: 2011Q4

REPORT INFORMATION
  Report Type: 
  Country: None (occurrence: None)
  Receive Date: 20111120
  Receipt Date: 20111107
  Transmission Date: 20120403
  Serious: Yes (Death, Other)
  Sender: FDA-Public Use
  Company Number: IL-BRISTOL-MYERS SQUIBB COMPANY-16239188

PATIENT
  Age: 53 Year
  Sex: Female

DRUGS (6)
  1. FULVESTRANT [Suspect]
     Indication: HORMONE THERAPY
  2. CAPECITABINE [Suspect]
     Indication: BREAST CANCER
  3. DOCETAXEL [Suspect]
     Indication: BREAST CANCER
  4. LETROZOLE [Suspect]
     Indication: BREAST CANCER
  5. PACLITAXEL [Suspect]
     Indication: BREAST CANCER
  6. TAMOXIFEN CITRATE [Suspect]
     Indication: BREAST CANCER

REACTIONS (2)
  - CARDIAC CIRRHOSIS [None]
  - HEPATIC FAILURE [None]
